FAERS Safety Report 11264040 (Version 4)
Quarter: 2015Q3

REPORT INFORMATION
  Report Type: Spontaneous
  Country: US (occurrence: None)
  Receive Date: 20150709
  Receipt Date: 20150817
  Transmission Date: 20151125
  Serious: Yes (Hospitalization, Other)
  Sender: FDA-Public Use
  Company Number: ADR-2015-01271

PATIENT
  Age: 41 Year
  Sex: Female

DRUGS (6)
  1. ALPRAZOLAM. [Suspect]
     Active Substance: ALPRAZOLAM
     Dosage: 1 TAB
     Route: 048
  2. GABAPENTIN. [Suspect]
     Active Substance: GABAPENTIN
     Dosage: CAP
     Route: 048
  3. HYDROXYZINE HCL [Suspect]
     Active Substance: HYDROXYZINE HYDROCHLORIDE
     Dosage: 1 TAB
     Route: 048
  4. LIORESAL [Suspect]
     Active Substance: BACLOFEN
     Indication: MUSCLE SPASTICITY
  5. ACETAMINOPHEN. [Suspect]
     Active Substance: ACETAMINOPHEN
     Dosage: 2 TAB
     Route: 048
  6. HYDRACODONE/ACETAMINOPHEN [Suspect]
     Active Substance: ACETAMINOPHEN\HYDROCODONE
     Dosage: 1 TAB
     Route: 048

REACTIONS (15)
  - Haemoglobin decreased [None]
  - Muscle spasticity [None]
  - Paralysis [None]
  - Urinary tract infection [None]
  - Blood chloride increased [None]
  - Pre-existing disease [None]
  - Underdose [None]
  - Hypertonia [None]
  - Pruritus [None]
  - Oedema peripheral [None]
  - Cerebral disorder [None]
  - Pain in extremity [None]
  - Platelet count increased [None]
  - Electroencephalogram abnormal [None]
  - Condition aggravated [None]
